FAERS Safety Report 21138150 (Version 2)
Quarter: 2022Q4

REPORT INFORMATION
  Report Type: Spontaneous
  Country: US (occurrence: US)
  Receive Date: 20220727
  Receipt Date: 20221007
  Transmission Date: 20230112
  Serious: No
  Sender: FDA-Public Use
  Company Number: US-BIOGEN-2022BI01127033

PATIENT
  Sex: Female

DRUGS (2)
  1. TYSABRI [Suspect]
     Active Substance: NATALIZUMAB
     Indication: Multiple sclerosis
     Dosage: ONE VIAL PER 28 DAYS,300MG/15ML
     Route: 050
  2. TYSABRI [Suspect]
     Active Substance: NATALIZUMAB
     Route: 050
     Dates: start: 20220704

REACTIONS (3)
  - Off label use [Unknown]
  - Fatigue [Unknown]
  - Back pain [Unknown]

NARRATIVE: CASE EVENT DATE: 20220101
